FAERS Safety Report 7522968-7 (Version None)
Quarter: 2011Q2

REPORT INFORMATION
  Report Type: 
  Country: None (occurrence: None)
  Receive Date: 20110603
  Receipt Date: 20110525
  Transmission Date: 20111010
  Serious: Yes (Death, Life-Threatening)
  Sender: FDA-Public Use
  Company Number: JP-CELGENEUS-087-50794-11053861

PATIENT
  Sex: Male

DRUGS (15)
  1. ALGLUCERASE [Concomitant]
     Dosage: 5 MILLIGRAM
     Route: 050
     Dates: start: 20110515, end: 20110516
  2. VIDAZA [Suspect]
     Indication: MYELODYSPLASTIC SYNDROME
     Dosage: 41 MILLIGRAM/SQ. METER
     Route: 051
     Dates: start: 20110427, end: 20110503
  3. MAGNESIUM SULFATE [Concomitant]
     Dosage: 330 MILLIGRAM
     Route: 048
     Dates: start: 20110427, end: 20110516
  4. ALLOPURINOL [Concomitant]
     Dosage: 100 MILLIGRAM
     Route: 048
     Dates: start: 20110427, end: 20110516
  5. METHYLPREDNISOLONE SODIUM SUCCINATE [Concomitant]
     Dosage: 250 MILLIGRAM
     Route: 050
     Dates: start: 20110512, end: 20110512
  6. HARNAL D [Concomitant]
     Dosage: .2 MILLIGRAM
     Route: 048
     Dates: start: 20110427, end: 20110516
  7. FLIVAS [Concomitant]
     Dosage: 25 MILLIGRAM
     Route: 048
     Dates: start: 20110427, end: 20110516
  8. FUNGARD [Concomitant]
     Dosage: 150 MILLIGRAM
     Route: 050
     Dates: start: 20110510, end: 20110515
  9. GRANISETRON HCL [Concomitant]
     Dosage: 2 MILLIGRAM
     Route: 048
     Dates: start: 20110504, end: 20110509
  10. LEVOFLOXACIN [Concomitant]
     Route: 065
     Dates: start: 20110504, end: 20110509
  11. GRAN [Concomitant]
     Dosage: 75 MILLIGRAM
     Route: 065
     Dates: start: 20110513, end: 20110515
  12. FAMOTIDINE [Concomitant]
     Dosage: 20 MILLIGRAM
     Route: 048
     Dates: start: 20110427, end: 20110516
  13. ITRACONAZOLE [Concomitant]
     Indication: PROPHYLAXIS
     Route: 065
     Dates: start: 20110504, end: 20110509
  14. LEVOFLOXACIN [Concomitant]
     Indication: PROPHYLAXIS
     Route: 065
     Dates: start: 20110504
  15. METHYLPREDNISOLONE SODIUM SUCCINATE [Concomitant]
     Dosage: 40 MILLIGRAM
     Route: 050
     Dates: start: 20110513, end: 20110515

REACTIONS (4)
  - WHITE BLOOD CELL COUNT DECREASED [None]
  - PLATELET COUNT DECREASED [None]
  - SEPSIS [None]
  - PNEUMONIA [None]
